FAERS Safety Report 4784513-9 (Version None)
Quarter: 2005Q3

REPORT INFORMATION
  Report Type: 
  Country: None (occurrence: None)
  Receive Date: 20050930
  Receipt Date: 20050708
  Transmission Date: 20060218
  Serious: Yes (Hospitalization)
  Sender: FDA-Public Use
  Company Number: JP-GLAXOSMITHKLINE-B0387194A

PATIENT
  Age: 76 Year
  Sex: Female
  Weight: 42 kg

DRUGS (7)
  1. PAXIL [Suspect]
     Indication: DEPRESSION
     Dosage: 10MG TWICE PER DAY
     Route: 048
     Dates: start: 20050131, end: 20050527
  2. LANIRAPID [Concomitant]
     Dosage: .1MG PER DAY
     Route: 048
  3. PARIET [Concomitant]
     Dosage: 1U PER DAY
     Route: 048
  4. AMOBAN [Concomitant]
     Dosage: 11.25MG PER DAY
     Route: 048
  5. POLLAKISU [Concomitant]
     Dosage: 6MG PER DAY
     Route: 048
  6. WARFARIN SODIUM [Concomitant]
     Dosage: 2MG PER DAY
     Route: 048
  7. YODEL S [Concomitant]
     Dosage: 3U PER DAY
     Route: 048

REACTIONS (4)
  - BLOOD CHLORIDE DECREASED [None]
  - HYPONATRAEMIA [None]
  - INAPPROPRIATE ANTIDIURETIC HORMONE SECRETION [None]
  - LOSS OF CONSCIOUSNESS [None]
